FAERS Safety Report 5117922-9 (Version None)
Quarter: 2006Q3

REPORT INFORMATION
  Report Type: 
  Country: None (occurrence: None)
  Receive Date: 20060926
  Receipt Date: 20060905
  Transmission Date: 20061208
  Serious: Yes (Other)
  Sender: FDA-Public Use
  Company Number: CA200608002694

PATIENT
  Age: 81 Year
  Sex: Female

DRUGS (7)
  1. FORTEO [Suspect]
     Indication: OSTEOPOROSIS
     Dosage: 20 UG, DAILY (1/D)
     Dates: start: 20050705, end: 20060501
  2. FORTEO [Concomitant]
  3. PARIENT                       (RABEPRAZOLE SODIUM) [Concomitant]
  4. METAMUCIL                             (GLUCOSE MONOHYDRATE, ISPAGHULA [Concomitant]
  5. VITAMINS NOS [Concomitant]
  6. COD-LIVER OIL [Concomitant]
  7. GRAVOL TAB [Concomitant]

REACTIONS (2)
  - EXTRASKELETAL OSTEOSARCOMA [None]
  - PAIN IN EXTREMITY [None]
